FAERS Safety Report 5363687-5 (Version None)
Quarter: 2007Q2

REPORT INFORMATION
  Report Type: 
  Country: None (occurrence: None)
  Receive Date: 20070620
  Receipt Date: 20070613
  Transmission Date: 20071010
  Serious: Yes (Death, Congenital Anomaly, Other)
  Sender: FDA-Public Use
  Company Number: ZA-AVENTIS-200715329GDDC

PATIENT

DRUGS (2)
  1. GLYBURIDE [Suspect]
     Dosage: DOSE: UNK
  2. METFORMIN HCL [Suspect]
     Dosage: DOSE: UNK

REACTIONS (8)
  - CONGENITAL ANOMALY [None]
  - DEATH NEONATAL [None]
  - DRUG EXPOSURE DURING PREGNANCY [None]
  - HYPOGLYCAEMIA NEONATAL [None]
  - JAUNDICE NEONATAL [None]
  - MACROSOMIA [None]
  - PRE-ECLAMPSIA [None]
  - STILLBIRTH [None]
